FAERS Safety Report 8114934-8 (Version None)
Quarter: 2012Q1

REPORT INFORMATION
  Report Type: 
  Country: None (occurrence: None)
  Receive Date: 20120206
  Receipt Date: 20120126
  Transmission Date: 20120608
  Serious: Yes (Other)
  Sender: FDA-Public Use
  Company Number: US-JNJFOC-20120201542

PATIENT
  Age: 50 Year
  Sex: Female

DRUGS (4)
  1. NUCYNTA ER [Suspect]
     Indication: PAIN
     Dosage: TWICE DAILY
     Route: 048
  2. EFFEXOR XR [Concomitant]
     Route: 065
  3. LYRICA [Concomitant]
     Route: 065
  4. TOPAMAX [Suspect]
     Indication: PRODUCT USED FOR UNKNOWN INDICATION
     Route: 048

REACTIONS (3)
  - TREMOR [None]
  - CONFUSIONAL STATE [None]
  - DYSPHEMIA [None]
